FAERS Safety Report 13596550 (Version 1)
Quarter: 2017Q2

REPORT INFORMATION
  Report Type: Spontaneous
  Country: CA (occurrence: CA)
  Receive Date: 20170531
  Receipt Date: 20170531
  Transmission Date: 20170830
  Serious: Yes (Death)
  Sender: FDA-Public Use
  Company Number: CA-TEVA-773923ACC

PATIENT
  Age: 29 Year
  Sex: Male
  Weight: 69 kg

DRUGS (1)
  1. HYDROMORPHONE [Suspect]
     Active Substance: HYDROMORPHONE
     Route: 065

REACTIONS (2)
  - Toxicity to various agents [Fatal]
  - Drug level above therapeutic [Fatal]
